FAERS Safety Report 8984559 (Version 3)
Quarter: 2013Q1

REPORT INFORMATION
  Report Type: Spontaneous
  Country: DE (occurrence: None)
  Receive Date: 20121214
  Receipt Date: 20130307
  Transmission Date: 20140127
  Serious: No
  Sender: FDA-Public Use
  Company Number: 1212DEU003940

PATIENT
  Age: 16 Year
  Sex: Female

DRUGS (1)
  1. KEIMAX [Suspect]
     Route: 048
     Dates: start: 20121207

REACTIONS (2)
  - Prescribed overdose [None]
  - No adverse event [None]
